FAERS Safety Report 8333328-3 (Version None)
Quarter: 2012Q1

REPORT INFORMATION
  Report Type: 
  Country: None (occurrence: None)
  Receive Date: 20120327
  Receipt Date: 20110329
  Transmission Date: 20120608
  Serious: Yes (Hospitalization, Other)
  Sender: FDA-Public Use
  Company Number: PHHY2011US26028

PATIENT
  Sex: Female

DRUGS (2)
  1. COUMADIN [Concomitant]
  2. GLEEVEC [Suspect]
     Dosage: 400 MG, DAILY, ORAL
     Route: 048

REACTIONS (1)
  - HAEMORRHAGE [None]
